FAERS Safety Report 5631532-6 (Version None)
Quarter: 2008Q1

REPORT INFORMATION
  Report Type: 
  Country: None (occurrence: None)
  Receive Date: 20080215
  Receipt Date: 20080205
  Transmission Date: 20080703
  Serious: Yes (Hospitalization)
  Sender: FDA-Public Use
  Company Number: 231037J08USA

PATIENT
  Age: 26 Year
  Sex: Female

DRUGS (3)
  1. REBIF [Suspect]
     Indication: MULTIPLE SCLEROSIS
     Dosage: 22 MCG, 3 IN 1 WEEKS, SUBCUTANEOUS
     Route: 058
     Dates: start: 20071029, end: 20071101
  2. NEURONTIN [Concomitant]
  3. ALBUTEROL INHALER (SALBUTAMOL /00139501/) [Concomitant]

REACTIONS (3)
  - PROGRESSIVE MULTIPLE SCLEROSIS [None]
  - PYREXIA [None]
  - STOMACH DISCOMFORT [None]
